FAERS Safety Report 20609093 (Version 37)
Quarter: 2025Q2

REPORT INFORMATION
  Report Type: Report from Study
  Country: US (occurrence: US)
  Receive Date: 20220317
  Receipt Date: 20250421
  Transmission Date: 20250717
  Serious: Yes (Hospitalization, Other)
  Sender: TAKEDA
  Company Number: US-PAREXEL-2021-KAM-US003422

PATIENT
  Age: 71 Year
  Sex: Male
  Weight: 84 kg

DRUGS (26)
  1. GLASSIA [Suspect]
     Active Substance: .ALPHA.1-PROTEINASE INHIBITOR HUMAN
     Indication: Alpha-1 antitrypsin deficiency
     Dosage: 60 MILLIGRAM/KILOGRAM, 1/WEEK
     Dates: start: 20181226
  2. GLASSIA [Suspect]
     Active Substance: .ALPHA.1-PROTEINASE INHIBITOR HUMAN
  3. EPINEPHRINE [Concomitant]
     Active Substance: EPINEPHRINE
  4. XARELTO [Concomitant]
     Active Substance: RIVAROXABAN
     Indication: Atrial fibrillation
  5. HYDROCHLOROTHIAZIDE [Concomitant]
     Active Substance: HYDROCHLOROTHIAZIDE
  6. FIBER THERAPY (CALCIUM POLYCARBOPHIL) [Concomitant]
     Active Substance: CALCIUM POLYCARBOPHIL
  7. VITAMIN D3 [Concomitant]
     Active Substance: CHOLECALCIFEROL
  8. SODIUM CHLORIDE [Concomitant]
     Active Substance: SODIUM CHLORIDE
  9. DEXTROMETHORPHAN HYDROBROMIDE [Concomitant]
     Active Substance: DEXTROMETHORPHAN HYDROBROMIDE
  10. LISINOPRIL [Concomitant]
     Active Substance: LISINOPRIL
  11. MUCINEX [Concomitant]
     Active Substance: GUAIFENESIN
  12. OXYGEN [Concomitant]
     Active Substance: OXYGEN
  13. DIPHENHYDRAMINE HYDROCHLORIDE [Concomitant]
     Active Substance: DIPHENHYDRAMINE HYDROCHLORIDE
  14. MODERNA COVID-19 VACCINE [Concomitant]
     Active Substance: ELASOMERAN
  15. BENZONATATE [Concomitant]
     Active Substance: BENZONATATE
  16. AMIODARONE HYDROCHLORIDE [Concomitant]
     Active Substance: AMIODARONE HYDROCHLORIDE
  17. TOPROL XL [Concomitant]
     Active Substance: METOPROLOL SUCCINATE
  18. MULTAQ [Concomitant]
     Active Substance: DRONEDARONE
  19. HEPARIN [Concomitant]
     Active Substance: HEPARIN SODIUM
  20. AMOXICILLIN [Concomitant]
     Active Substance: AMOXICILLIN
  21. METOPROLOL SUCCINATE [Concomitant]
     Active Substance: METOPROLOL SUCCINATE
  22. AMLODIPINE BESYLATE [Concomitant]
     Active Substance: AMLODIPINE BESYLATE
  23. OMEPRAZOLE [Concomitant]
     Active Substance: OMEPRAZOLE
  24. DOXYCYCLINE HYCLATE [Concomitant]
     Active Substance: DOXYCYCLINE HYCLATE
  25. METOPROLOL TARTRATE [Concomitant]
     Active Substance: METOPROLOL TARTRATE
  26. MAGNESIUM CHLORIDE [Concomitant]
     Active Substance: MAGNESIUM CHLORIDE

REACTIONS (35)
  - Cardiac flutter [Unknown]
  - Atrial flutter [Recovered/Resolved]
  - Heart rate increased [Unknown]
  - Cardiac disorder [Unknown]
  - Atrial fibrillation [Unknown]
  - Hypertension [Unknown]
  - Seasonal allergy [Not Recovered/Not Resolved]
  - Obstruction [Unknown]
  - Multiple allergies [Unknown]
  - Gingival bleeding [Unknown]
  - Dry throat [Unknown]
  - Abdominal discomfort [Unknown]
  - Oral herpes [Unknown]
  - Sinus congestion [Unknown]
  - Nasal congestion [Unknown]
  - Food poisoning [Unknown]
  - Nasopharyngitis [Unknown]
  - Pyrexia [Unknown]
  - Oropharyngeal pain [Unknown]
  - Rash erythematous [Unknown]
  - Contusion [Unknown]
  - Post procedural complication [Unknown]
  - Respiratory tract infection [Unknown]
  - Productive cough [Unknown]
  - Blood pressure abnormal [Unknown]
  - Pain [Unknown]
  - Product dose omission issue [Unknown]
  - Tooth infection [Unknown]
  - Malaise [Unknown]
  - Diarrhoea [Unknown]
  - Vomiting [Unknown]
  - Chronic obstructive pulmonary disease [Unknown]
  - Back pain [Unknown]
  - Rhinorrhoea [Unknown]
  - Fatigue [Unknown]

NARRATIVE: CASE EVENT DATE: 20240503
